FAERS Safety Report 12195553 (Version 2)
Quarter: 2016Q1

REPORT INFORMATION
  Report Type: Spontaneous
  Country: US (occurrence: US)
  Receive Date: 20160321
  Receipt Date: 20160328
  Transmission Date: 20160526
  Serious: Yes (Hospitalization, Other)
  Sender: FDA-Public Use
  Company Number: US-ASTRAZENECA-2016SE30246

PATIENT
  Age: 47 Year
  Sex: Male

DRUGS (33)
  1. DONEPEZIL HYDROCHLORIDE. [Suspect]
     Active Substance: DONEPEZIL HYDROCHLORIDE
     Dosage: UNK, DAILY
     Route: 065
  2. PANTOPRAZOLE [Suspect]
     Active Substance: PANTOPRAZOLE SODIUM
     Route: 065
  3. AMOXICILLIN, CLAVULANIC ACID [Suspect]
     Active Substance: AMOXICILLIN\CLAVULANIC ACID
     Route: 065
  4. WARFARIN [Suspect]
     Active Substance: WARFARIN
     Route: 065
  5. LIORESAL [Suspect]
     Active Substance: BACLOFEN
     Indication: MUSCLE SPASTICITY
     Route: 037
     Dates: start: 201509
  6. ESOMEPRAZOLE MAGNESIUM. [Suspect]
     Active Substance: ESOMEPRAZOLE MAGNESIUM
     Route: 048
  7. SERTRALINE HYDROCHLORIDE. [Suspect]
     Active Substance: SERTRALINE HYDROCHLORIDE
     Route: 065
  8. DOCQLACE [Suspect]
     Active Substance: DOCUSATE SODIUM
     Route: 065
  9. VITAMIN D2 [Suspect]
     Active Substance: ERGOCALCIFEROL
     Dosage: 5000 UNITS, ONCE A WEEK
     Route: 065
  10. LIORESAL [Suspect]
     Active Substance: BACLOFEN
     Indication: MUSCLE SPASTICITY
     Route: 037
     Dates: start: 20151026
  11. LIORESAL [Suspect]
     Active Substance: BACLOFEN
     Indication: MUSCLE SPASTICITY
     Route: 037
     Dates: start: 20151028
  12. SPIRONOLACTONE. [Suspect]
     Active Substance: SPIRONOLACTONE
     Route: 065
  13. TRAZODONE [Suspect]
     Active Substance: TRAZODONE HYDROCHLORIDE
     Route: 065
  14. MIRTAZAPINE. [Suspect]
     Active Substance: MIRTAZAPINE
     Route: 065
  15. CIPROFLOXACIN. [Suspect]
     Active Substance: CIPROFLOXACIN
     Route: 065
  16. MELATONIN [Suspect]
     Active Substance: MELATONIN
     Route: 065
  17. FUROSEMIDE. [Suspect]
     Active Substance: FUROSEMIDE
     Route: 065
  18. KETOCONAZOLE. [Suspect]
     Active Substance: KETOCONAZOLE
     Dosage: UNK
     Route: 065
  19. POLYETHYLENE GLYCOL [Suspect]
     Active Substance: POLYETHYLENE GLYCOLS
     Route: 048
  20. WARFARIN [Suspect]
     Active Substance: WARFARIN
     Route: 065
  21. LIORESAL [Suspect]
     Active Substance: BACLOFEN
     Indication: MUSCLE SPASTICITY
     Route: 037
  22. LIORESAL [Suspect]
     Active Substance: BACLOFEN
     Indication: MUSCLE SPASTICITY
     Route: 037
     Dates: start: 20151026
  23. POTASSIUM CHLORIDE. [Suspect]
     Active Substance: POTASSIUM CHLORIDE
     Route: 065
  24. LYRICA [Suspect]
     Active Substance: PREGABALIN
     Route: 065
  25. FLUCONAZOLE. [Suspect]
     Active Substance: FLUCONAZOLE
     Route: 065
  26. FAMCICLOVIR. [Suspect]
     Active Substance: FAMCICLOVIR
     Route: 065
  27. NYSTATIN. [Suspect]
     Active Substance: NYSTATIN
     Dosage: UNK, 100000 U/ML
     Route: 048
  28. ALPRAZOLAM. [Suspect]
     Active Substance: ALPRAZOLAM
     Route: 065
  29. OXYCODONE [Suspect]
     Active Substance: OXYCODONE
     Dosage: 10/325 MG
     Route: 065
  30. LIORESAL [Suspect]
     Active Substance: BACLOFEN
     Indication: MUSCLE SPASTICITY
     Route: 037
  31. METOPROLOL. [Suspect]
     Active Substance: METOPROLOL
     Route: 048
  32. AMANTADINE [Suspect]
     Active Substance: AMANTADINE
     Route: 065
  33. LIORESAL [Suspect]
     Active Substance: BACLOFEN
     Indication: MUSCLE SPASTICITY
     Route: 037

REACTIONS (17)
  - Urinary incontinence [Unknown]
  - Oedema peripheral [Unknown]
  - Bladder dilatation [Unknown]
  - Heart rate increased [Recovered/Resolved]
  - Urinary retention [Unknown]
  - Blood pressure increased [Recovered/Resolved]
  - No therapeutic response [Unknown]
  - Device occlusion [Unknown]
  - Muscle spasms [Unknown]
  - Subcutaneous abscess [Unknown]
  - Hypertonia [Unknown]
  - Musculoskeletal stiffness [Unknown]
  - Muscle tightness [Unknown]
  - Dyspnoea [Recovered/Resolved]
  - Respiratory distress [Unknown]
  - Performance status decreased [Unknown]
  - Abdominal distension [Unknown]

NARRATIVE: CASE EVENT DATE: 20150428
